FAERS Safety Report 18022434 (Version 1)
Quarter: 2020Q3

REPORT INFORMATION
  Report Type: Spontaneous
  Country: FR (occurrence: FR)
  Receive Date: 20200715
  Receipt Date: 20200715
  Transmission Date: 20201103
  Serious: Yes (Other)
  Sender: FDA-Public Use
  Company Number: FR-AUROBINDO-AUR-APL-2017-07176

PATIENT
  Age: 40 Year
  Sex: Male

DRUGS (1)
  1. TRAMADOL HYDROCHLORIDE (AELLC) [Suspect]
     Active Substance: TRAMADOL HYDROCHLORIDE
     Indication: PRODUCT USED FOR UNKNOWN INDICATION
     Dosage: UNK
     Route: 065

REACTIONS (3)
  - Drug withdrawal syndrome [Unknown]
  - Drug abuse [Unknown]
  - Tic [Unknown]
